FAERS Safety Report 20859223 (Version 1)
Quarter: 2022Q2

REPORT INFORMATION
  Report Type: Spontaneous
  Country: FR (occurrence: FR)
  Receive Date: 20220523
  Receipt Date: 20220523
  Transmission Date: 20220720
  Serious: Yes (Hospitalization, Other)
  Sender: FDA-Public Use
  Company Number: FR-AFSSAPS-NT20221731

PATIENT
  Age: 33 Year
  Sex: Male

DRUGS (1)
  1. ELETRIPTAN [Suspect]
     Active Substance: ELETRIPTAN
     Indication: Migraine
     Dosage: 40 MILLIGRAM (IF NECESSARY)
     Route: 048

REACTIONS (3)
  - Status migrainosus [Recovered/Resolved]
  - Troponin increased [Not Recovered/Not Resolved]
  - Hepatocellular injury [Not Recovered/Not Resolved]

NARRATIVE: CASE EVENT DATE: 20220401
